FAERS Safety Report 8495791-7 (Version None)
Quarter: 2012Q3

REPORT INFORMATION
  Report Type: 
  Country: None (occurrence: None)
  Receive Date: 20120709
  Receipt Date: 20120703
  Transmission Date: 20120928
  Serious: Yes (Disabling, Other)
  Sender: FDA-Public Use
  Company Number: DE-ROCHE-GNE299662

PATIENT
  Age: 71 Year
  Sex: Female

DRUGS (3)
  1. LUCENTIS [Suspect]
     Indication: AGE-RELATED MACULAR DEGENERATION
     Dosage: UNK
     Route: 050
     Dates: start: 20070101
  2. LUCENTIS [Suspect]
     Route: 050
     Dates: start: 20100309
  3. LUCENTIS [Suspect]
     Route: 050
     Dates: start: 20100105

REACTIONS (5)
  - VITREOUS HAEMORRHAGE [None]
  - CATARACT [None]
  - CONJUNCTIVAL HAEMORRHAGE [None]
  - BLINDNESS UNILATERAL [None]
  - AGE-RELATED MACULAR DEGENERATION [None]
